FAERS Safety Report 8386587-5 (Version None)
Quarter: 2012Q2

REPORT INFORMATION
  Report Type: 
  Country: None (occurrence: None)
  Receive Date: 20120525
  Receipt Date: 20111115
  Transmission Date: 20120825
  Serious: No
  Sender: FDA-Public Use
  Company Number: US-GLAXOSMITHKLINE-A0953133A

PATIENT
  Age: 53 Year
  Sex: Female

DRUGS (8)
  1. AMBIEN [Concomitant]
  2. VERAMYST [Suspect]
     Route: 045
     Dates: start: 20111112
  3. PREMARIN [Concomitant]
  4. PROTONIX [Concomitant]
  5. TRAMADOL HCL [Concomitant]
  6. LOSARTAN POTASSIUM [Concomitant]
  7. ESTRACE [Concomitant]
     Route: 067
  8. CYMBALTA [Concomitant]

REACTIONS (2)
  - EPISTAXIS [None]
  - PRODUCT QUALITY ISSUE [None]
